FAERS Safety Report 22004849 (Version 1)
Quarter: 2023Q1

REPORT INFORMATION
  Report Type: Report from Study
  Country: GB (occurrence: GB)
  Receive Date: 20230217
  Receipt Date: 20230217
  Transmission Date: 20230417
  Serious: Yes (Other)
  Sender: FDA-Public Use
  Company Number: GB-GLAXOSMITHKLINE-GB2022EME138388

PATIENT

DRUGS (1)
  1. NIRAPARIB [Suspect]
     Active Substance: NIRAPARIB
     Indication: Neoplasm malignant
     Dosage: 200 MG

REACTIONS (5)
  - Deafness unilateral [Unknown]
  - Dyspepsia [Unknown]
  - Heart rate increased [Unknown]
  - Palpitations [Unknown]
  - Muscle spasms [Unknown]
